FAERS Safety Report 9674686 (Version 1)
Quarter: 2013Q4

REPORT INFORMATION
  Report Type: Spontaneous
  Country: US (occurrence: None)
  Receive Date: 20131106
  Receipt Date: 20131106
  Transmission Date: 20140711
  Serious: No
  Sender: FDA-Public Use
  Company Number: None

PATIENT
  Age: 28 Year
  Sex: Female
  Weight: 49.9 kg

DRUGS (4)
  1. MIRVASO [Suspect]
     Indication: ROSACEA
     Dosage: PEA SIZED AMOUNT TO SPEC AREAS, APPLIED TO A SURFACE USUALLY THE SKIN
     Route: 061
     Dates: start: 20131007
  2. BIRTH CONTROL [Concomitant]
  3. PROBIOTICS [Concomitant]
  4. ZYRTEC [Concomitant]

REACTIONS (2)
  - Application site erythema [None]
  - Application site warmth [None]
